FAERS Safety Report 21656039 (Version 1)
Quarter: 2022Q4

REPORT INFORMATION
  Report Type: Report from Study
  Country: US (occurrence: US)
  Receive Date: 20221129
  Receipt Date: 20221129
  Transmission Date: 20230112
  Serious: No
  Sender: FDA-Public Use
  Company Number: US-ABBVIE-4181764

PATIENT
  Sex: Female

DRUGS (2)
  1. RINVOQ [Suspect]
     Active Substance: UPADACITINIB
     Indication: Rheumatoid arthritis
     Route: 058
  2. Covid-19 Pfizer/BioNTech [Concomitant]
     Indication: COVID-19 immunisation

REACTIONS (1)
  - Scoliosis [Not Recovered/Not Resolved]
